FAERS Safety Report 20793348 (Version 1)
Quarter: 2022Q2

REPORT INFORMATION
  Report Type: Other
  Country: US (occurrence: None)
  Receive Date: 20220506
  Receipt Date: 20220506
  Transmission Date: 20220721
  Serious: Yes (Hospitalization)
  Sender: FDA-Public Use
  Company Number: US-ROCHE-3084647

PATIENT
  Age: 66 Year
  Sex: Male
  Weight: 88.984 kg

DRUGS (8)
  1. OCREVUS [Suspect]
     Active Substance: OCRELIZUMAB
     Indication: Secondary progressive multiple sclerosis
     Dosage: INFUSE 300 MG DAY LAND DAY 15, THEN INFUSE 600MG EVERY 6 MONTHS
     Route: 042
  2. SERTRALINE [Concomitant]
     Active Substance: SERTRALINE HYDROCHLORIDE
  3. COPAXONE [Concomitant]
     Active Substance: GLATIRAMER ACETATE
  4. AUBAGIO [Concomitant]
     Active Substance: TERIFLUNOMIDE
  5. TECFIDERA [Concomitant]
     Active Substance: DIMETHYL FUMARATE
  6. REBIF [Concomitant]
     Active Substance: INTERFERON BETA-1A
  7. BETASERON [Concomitant]
     Active Substance: INTERFERON BETA-1B
  8. AVONEX [Concomitant]
     Active Substance: INTERFERON BETA-1A

REACTIONS (2)
  - COVID-19 [Recovered/Resolved]
  - COVID-19 pneumonia [Recovered/Resolved]

NARRATIVE: CASE EVENT DATE: 20211231
